FAERS Safety Report 13126074 (Version 1)
Quarter: 2017Q1

REPORT INFORMATION
  Report Type: Spontaneous
  Country: None (occurrence: IT)
  Receive Date: 20170118
  Receipt Date: 20170118
  Transmission Date: 20170428
  Serious: Yes (Other)
  Sender: FDA-Public Use
  Company Number: IT-MERCK KGAA-1062118

PATIENT

DRUGS (1)
  1. NOVOTHYROX [Suspect]
     Active Substance: LEVOTHYROXINE SODIUM

REACTIONS (5)
  - Stevens-Johnson syndrome [None]
  - Skin exfoliation [None]
  - Eye pruritus [None]
  - Erythema [None]
  - Ocular hyperaemia [None]
